FAERS Safety Report 18110968 (Version 2)
Quarter: 2020Q3

REPORT INFORMATION
  Report Type: Spontaneous
  Country: JP (occurrence: JP)
  Receive Date: 20200804
  Receipt Date: 20200909
  Transmission Date: 20201103
  Serious: Yes (Other)
  Sender: FDA-Public Use
  Company Number: JP-JNJFOC-20200801607

PATIENT
  Age: 92 Year
  Sex: Male

DRUGS (4)
  1. BREDININ [Concomitant]
     Active Substance: MIZORIBINE
     Dosage: PERORAL MEDICINE
     Route: 048
  2. SIMPONI [Suspect]
     Active Substance: GOLIMUMAB
     Indication: RHEUMATOID ARTHRITIS
     Dosage: GOLIMUMAB(GENETICAL RECOMBINATION):50MG
     Route: 058
     Dates: start: 20151003, end: 20200625
  3. BROTIZOLAM [Concomitant]
     Active Substance: BROTIZOLAM
     Route: 048
  4. NORITREN [Concomitant]
     Active Substance: NORTRIPTYLINE HYDROCHLORIDE
     Dosage: PERORAL MEDICINE
     Route: 048

REACTIONS (1)
  - Epstein-Barr virus associated lymphoma [Unknown]

NARRATIVE: CASE EVENT DATE: 20200706
